FAERS Safety Report 17157616 (Version 1)
Quarter: 2019Q4

REPORT INFORMATION
  Report Type: Spontaneous
  Country: US (occurrence: US)
  Receive Date: 20191216
  Receipt Date: 20191216
  Transmission Date: 20200122
  Serious: No
  Sender: FDA-Public Use
  Company Number: US-TEVA-2019-US-1154229

PATIENT
  Age: 68 Year
  Sex: Male
  Weight: 77.73 kg

DRUGS (1)
  1. GABAPENTIN. [Suspect]
     Active Substance: GABAPENTIN
     Indication: TINNITUS
     Dosage: 2 TABLETS THREE TIMES A DAY
     Route: 065
     Dates: start: 201907

REACTIONS (2)
  - Weight increased [Unknown]
  - Product use in unapproved indication [Unknown]
